FAERS Safety Report 7810418-2 (Version None)
Quarter: 2011Q4

REPORT INFORMATION
  Report Type: 
  Country: None (occurrence: None)
  Receive Date: 20111012
  Receipt Date: 20111003
  Transmission Date: 20120403
  Serious: Yes (Other)
  Sender: FDA-Public Use
  Company Number: US-MERCK-0707USA00950

PATIENT
  Age: 39 Year
  Sex: Female
  Weight: 57 kg

DRUGS (10)
  1. FOSAMAX [Suspect]
     Indication: OSTEOPENIA
     Route: 048
     Dates: start: 20000101, end: 20050801
  2. MESTINON [Concomitant]
     Indication: MYASTHENIA GRAVIS
     Route: 065
     Dates: start: 19970101
  3. FOSAMAX [Suspect]
     Indication: OSTEOPOROSIS
     Route: 048
     Dates: start: 20000101, end: 20050801
  4. CALCIUM (UNSPECIFIED) [Concomitant]
     Route: 065
  5. VITAMIN D (UNSPECIFIED) [Concomitant]
     Route: 065
  6. [THERAPY UNSPECIFIED] [Concomitant]
     Indication: HYPERTENSION
     Route: 065
     Dates: start: 20050901
  7. PRILOSEC [Concomitant]
     Indication: GASTRIC ULCER
     Route: 065
     Dates: start: 19970101
  8. ZOMETA [Concomitant]
     Route: 065
     Dates: start: 20050706
  9. SYNTHROID [Concomitant]
     Indication: HYPOTHYROIDISM
     Route: 065
     Dates: start: 19970101
  10. FORTEO [Concomitant]
     Route: 065
     Dates: start: 20051001

REACTIONS (57)
  - OSTEOMYELITIS [None]
  - CONTUSION [None]
  - MASTICATION DISORDER [None]
  - DRUG INTOLERANCE [None]
  - MUSCULAR WEAKNESS [None]
  - LYME DISEASE [None]
  - ORAL DISORDER [None]
  - DENTAL CARIES [None]
  - SOMNAMBULISM [None]
  - DYSARTHRIA [None]
  - GINGIVITIS [None]
  - DYSPHONIA [None]
  - OSTEONECROSIS OF JAW [None]
  - ADVERSE DRUG REACTION [None]
  - TOOTH LOSS [None]
  - DRUG HYPERSENSITIVITY [None]
  - GASTROINTESTINAL CANDIDIASIS [None]
  - ANOSMIA [None]
  - CHRONIC SINUSITIS [None]
  - DUODENAL ULCER [None]
  - ARTHRALGIA [None]
  - SPINAL FRACTURE [None]
  - MUSCULOSKELETAL PAIN [None]
  - GLOSSITIS [None]
  - SPASMODIC DYSPHONIA [None]
  - TONGUE NEOPLASM MALIGNANT STAGE UNSPECIFIED [None]
  - THYROID CANCER [None]
  - ANXIETY [None]
  - DIPLOPIA [None]
  - VOCAL CORD PARESIS [None]
  - PHAEOCHROMOCYTOMA [None]
  - TONGUE DISORDER [None]
  - DEPRESSION [None]
  - DRUG INEFFECTIVE [None]
  - BLOOD PARATHYROID HORMONE INCREASED [None]
  - EAR DISORDER [None]
  - HYPERSENSITIVITY [None]
  - GASTROINTESTINAL DISORDER [None]
  - GASTROINTESTINAL ULCER [None]
  - ASPIRATION [None]
  - BONE PAIN [None]
  - DUODENITIS [None]
  - EAR PAIN [None]
  - WRIST FRACTURE [None]
  - EYELID PTOSIS [None]
  - FALL [None]
  - POST-TRAUMATIC NECK SYNDROME [None]
  - ABDOMINAL PAIN [None]
  - DERMATITIS ALLERGIC [None]
  - DYSPNOEA [None]
  - FOOT FRACTURE [None]
  - DYSPHAGIA [None]
  - EPISTAXIS [None]
  - INSOMNIA [None]
  - SINUSITIS [None]
  - IMPAIRED HEALING [None]
  - LEUKOPLAKIA ORAL [None]
